FAERS Safety Report 4855661-X (Version None)
Quarter: 2005Q4

REPORT INFORMATION
  Report Type: 
  Country: None (occurrence: None)
  Receive Date: 20051216
  Receipt Date: 20051208
  Transmission Date: 20060501
  Serious: Yes (Hospitalization)
  Sender: FDA-Public Use
  Company Number: PHBS2005JP18342

PATIENT
  Age: 60 Year
  Sex: Female

DRUGS (2)
  1. EXCELASE [Concomitant]
     Route: 048
     Dates: start: 20050519, end: 20050609
  2. LAMISIL [Suspect]
     Indication: NAIL TINEA
     Dosage: 125 MG/D
     Route: 048
     Dates: start: 20050519, end: 20050609

REACTIONS (7)
  - ALOPECIA [None]
  - CRONKHITE-CANADA SYNDROME [None]
  - DIARRHOEA [None]
  - GASTRIC POLYPS [None]
  - HYPOGEUSIA [None]
  - ONYCHOMADESIS [None]
  - PIGMENTATION DISORDER [None]
